FAERS Safety Report 19995209 (Version 1)
Quarter: 2021Q4

REPORT INFORMATION
  Report Type: Spontaneous
  Country: BR (occurrence: BR)
  Receive Date: 20211025
  Receipt Date: 20211025
  Transmission Date: 20220303
  Serious: Yes (Other)
  Sender: FDA-Public Use
  Company Number: BR-MYLANLABS-2021M1075473

PATIENT
  Age: 41 Year
  Sex: Female
  Weight: 44.1 kg

DRUGS (39)
  1. CISPLATIN [Suspect]
     Active Substance: CISPLATIN
     Indication: Ovarian cancer
     Dosage: 1ST CYCLE; CISPLATIN+GENCITABINE + BEVA
     Dates: start: 20210218
  2. CISPLATIN [Suspect]
     Active Substance: CISPLATIN
     Dosage: 2ND CYCLE; CISPLATIN+GENCITABINE + BEVA
     Dates: start: 20210306
  3. CISPLATIN [Suspect]
     Active Substance: CISPLATIN
     Dosage: 3RD CYCLE; CISPLATIN+GENCITABINE + BEVA
     Dates: start: 20210327
  4. CISPLATIN [Suspect]
     Active Substance: CISPLATIN
     Dosage: 4TH CYCLE; CISPLATIN+GENCITABINE + BEVA
     Dates: start: 20210409
  5. CISPLATIN [Suspect]
     Active Substance: CISPLATIN
     Dosage: 5TH CYCLE; CISPLATIN+GENCITABINE + BEVA
     Dates: start: 20210430
  6. CISPLATIN [Suspect]
     Active Substance: CISPLATIN
     Dosage: 6TH CYCLE; (CISPLATIN+GENCITABINE +BEVA)
     Dates: start: 20210508
  7. CISPLATIN [Suspect]
     Active Substance: CISPLATIN
     Dosage: 7TH CYCLE; (CISPLATIN+GENCITABINE +BEVA)
     Dates: start: 20210406
  8. CISPLATIN [Suspect]
     Active Substance: CISPLATIN
     Dosage: 8TH CYCLE; (CISPLATIN+GENCITABINE +BEVA)
     Dates: start: 20210611
  9. CISPLATIN [Suspect]
     Active Substance: CISPLATIN
     Dosage: 9TH CYCLE; (CISPLATIN+GENCITABINE +BEVA)
     Dates: start: 20210626
  10. GEMCITABINE [Suspect]
     Active Substance: GEMCITABINE
     Indication: Ovarian cancer
     Dosage: 1ST CYCLE; (CISPLATIN+GENCITABINE + BEVA)
     Dates: start: 20210218
  11. GEMCITABINE [Suspect]
     Active Substance: GEMCITABINE
     Dosage: 2ND CYCLE; (CISPLATIN+GENCITABINE + BEVA)
     Dates: start: 20210306
  12. GEMCITABINE [Suspect]
     Active Substance: GEMCITABINE
     Dosage: 3RD CYCLE; (CISPLATIN+GENCITABINE + BEVA)
     Dates: start: 20210327
  13. GEMCITABINE [Suspect]
     Active Substance: GEMCITABINE
     Dosage: 4TH CYCLE; (CISPLATIN+GENCITABINE + BEVA)
     Dates: start: 20210409
  14. GEMCITABINE [Suspect]
     Active Substance: GEMCITABINE
     Dosage: 5TH CYCLE; (CISPLATIN+GENCITABINE + BEVA)
     Dates: start: 20210430
  15. GEMCITABINE [Suspect]
     Active Substance: GEMCITABINE
     Dosage: 6TH CYCLE; (CISPLATIN+GENCITABINE + BEVA)
     Dates: start: 20210508
  16. GEMCITABINE [Suspect]
     Active Substance: GEMCITABINE
     Dosage: 7TH CYCLE; (CISPLATIN+GENCITABINE + BEVA)
     Dates: start: 20210406
  17. GEMCITABINE [Suspect]
     Active Substance: GEMCITABINE
     Dosage: 8TH CYCLE; (CISPLATIN+GENCITABINE + BEVA)
     Dates: start: 20210611
  18. GEMCITABINE [Suspect]
     Active Substance: GEMCITABINE
     Dosage: 9TH CYCLE; (CISPLATIN+GENCITABINE + BEVA)
     Dates: start: 20210626
  19. BEVACIZUMAB [Suspect]
     Active Substance: BEVACIZUMAB
     Indication: Ovarian cancer
     Dosage: 1ST CYCLE; (CISPLATIN+GENCITABINE + BEVA)
     Dates: start: 20210218
  20. BEVACIZUMAB [Suspect]
     Active Substance: BEVACIZUMAB
     Dosage: 2ND CYCLE; (CISPLATIN+GENCITABINE + BEVA)
     Dates: start: 20210306
  21. BEVACIZUMAB [Suspect]
     Active Substance: BEVACIZUMAB
     Dosage: 3RD CYCLE; (CISPLATIN+GENCITABINE + BEVA)
     Dates: start: 20210327
  22. BEVACIZUMAB [Suspect]
     Active Substance: BEVACIZUMAB
     Dosage: 4TH CYCLE; (CISPLATIN+GENCITABINE + BEVA)
     Dates: start: 20210409
  23. BEVACIZUMAB [Suspect]
     Active Substance: BEVACIZUMAB
     Dosage: 5TH CYCLE; (CISPLATIN+GENCITABINE + BEVA)
     Dates: start: 20210430
  24. BEVACIZUMAB [Suspect]
     Active Substance: BEVACIZUMAB
     Dosage: 6TH CYCLE; (CISPLATIN+GENCITABINE + BEVA)
     Dates: start: 20210508
  25. BEVACIZUMAB [Suspect]
     Active Substance: BEVACIZUMAB
     Dosage: 7TH CYCLE; (CISPLATIN+GENCITABINE + BEVA)
     Dates: start: 20210406
  26. BEVACIZUMAB [Suspect]
     Active Substance: BEVACIZUMAB
     Dosage: 7TH CYCLE; (CISPLATIN+GENCITABINE + BEVA)
     Dates: start: 20210611
  27. BEVACIZUMAB [Suspect]
     Active Substance: BEVACIZUMAB
     Dosage: 8TH CYCLE; (CISPLATIN+GENCITABINE + BEVA)
     Dates: start: 20210626
  28. PACLITAXEL [Concomitant]
     Active Substance: PACLITAXEL
     Indication: Ovarian cancer
     Dosage: 1ST CYCLE; PACLITAXEL+CARBOPLATIN
     Dates: start: 20200626
  29. PACLITAXEL [Concomitant]
     Active Substance: PACLITAXEL
     Dosage: 2ND CYCLE; PACLITAXEL+CARBOPLATIN
     Dates: start: 20200717
  30. PACLITAXEL [Concomitant]
     Active Substance: PACLITAXEL
     Dosage: 3RD CYCLE; PACLITAXEL+CARBOPLATIN
     Dates: start: 20200814
  31. PACLITAXEL [Concomitant]
     Active Substance: PACLITAXEL
     Dosage: 4TH CYCLE; PACLITAXEL+CARBOPLATIN
     Dates: start: 20201016
  32. PACLITAXEL [Concomitant]
     Active Substance: PACLITAXEL
     Dosage: 5TH CYCLE; PACLITAXEL+CARBOPLATIN
     Dates: start: 20201113
  33. PACLITAXEL [Concomitant]
     Active Substance: PACLITAXEL
     Dosage: 6TH CYCLE; PACLITAXEL+CARBOPLATIN
     Dates: start: 20200412
  34. CARBOPLATIN [Concomitant]
     Active Substance: CARBOPLATIN
     Indication: Ovarian cancer
     Dosage: 1ST CYCLE; PACLITAXEL+CARBOPLATIN
     Dates: start: 20200626
  35. CARBOPLATIN [Concomitant]
     Active Substance: CARBOPLATIN
     Dosage: 2ND CYCLE; PACLITAXEL+CARBOPLATIN
     Dates: start: 20200717
  36. CARBOPLATIN [Concomitant]
     Active Substance: CARBOPLATIN
     Dosage: 3RD CYCLE; PACLITAXEL+CARBOPLATIN
     Dates: start: 20200814
  37. CARBOPLATIN [Concomitant]
     Active Substance: CARBOPLATIN
     Dosage: 4TH CYCLE; PACLITAXEL+CARBOPLATIN
     Dates: start: 20201016
  38. CARBOPLATIN [Concomitant]
     Active Substance: CARBOPLATIN
     Dosage: 5TH CYCLE; PACLITAXEL+CARBOPLATIN
     Dates: start: 20201113
  39. CARBOPLATIN [Concomitant]
     Active Substance: CARBOPLATIN
     Dosage: 6TH CYCLE; PACLITAXEL+CARBOPLATIN
     Dates: start: 20200412

REACTIONS (2)
  - Metastases to lung [Unknown]
  - Neoplasm progression [Unknown]
